FAERS Safety Report 17860449 (Version 1)
Quarter: 2020Q2

REPORT INFORMATION
  Report Type: Spontaneous
  Country: FR (occurrence: FR)
  Receive Date: 20200604
  Receipt Date: 20200604
  Transmission Date: 20200714
  Serious: Yes (Other)
  Sender: FDA-Public Use
  Company Number: FR-MYLANLABS-2020M1054196

PATIENT
  Age: 61 Year
  Sex: Female

DRUGS (1)
  1. DYMISTA [Suspect]
     Active Substance: AZELASTINE HYDROCHLORIDE\FLUTICASONE PROPIONATE
     Indication: RHINITIS PERENNIAL
     Dosage: UNK
     Dates: start: 2019

REACTIONS (2)
  - Retinal detachment [Unknown]
  - Visual impairment [Unknown]
